FAERS Safety Report 21087109 (Version 1)
Quarter: 2022Q3

REPORT INFORMATION
  Report Type: Spontaneous
  Country: CA (occurrence: CA)
  Receive Date: 20220715
  Receipt Date: 20220715
  Transmission Date: 20221026
  Serious: Yes (Death)
  Sender: FDA-Public Use
  Company Number: None

PATIENT
  Age: 75 Year
  Sex: Female

DRUGS (1)
  1. DAPTOMYCIN [Suspect]
     Active Substance: DAPTOMYCIN
     Indication: Product used for unknown indication
     Dosage: 1 EVERY 48 HOURS
     Route: 042

REACTIONS (3)
  - Blood creatine phosphokinase increased [Fatal]
  - Cardiac arrest [Fatal]
  - Rhabdomyolysis [Fatal]
